FAERS Safety Report 17516880 (Version 4)
Quarter: 2021Q2

REPORT INFORMATION
  Report Type: Spontaneous
  Country: US (occurrence: US)
  Receive Date: 20200309
  Receipt Date: 20210624
  Transmission Date: 20210716
  Serious: Yes (Other)
  Sender: FDA-Public Use
  Company Number: US-GILEAD-2020-0453906

PATIENT
  Age: 59 Year
  Sex: Male
  Weight: 104.31 kg

DRUGS (31)
  1. GASTROGRAFIN [Concomitant]
     Active Substance: DIATRIZOATE MEGLUMINE\DIATRIZOATE SODIUM
  2. ZOLOFT [Concomitant]
     Active Substance: SERTRALINE HYDROCHLORIDE
  3. BIKTARVY [Concomitant]
     Active Substance: BICTEGRAVIR SODIUM\EMTRICITABINE\TENOFOVIR ALAFENAMIDE FUMARATE
  4. AMOXICILLIN. [Concomitant]
     Active Substance: AMOXICILLIN
  5. AVAPRO [Concomitant]
     Active Substance: IRBESARTAN
  6. NAPROXEN. [Concomitant]
     Active Substance: NAPROXEN
  7. IODIPAMIDE. [Concomitant]
     Active Substance: IODIPAMIDE
  8. GADOBUTROL. [Concomitant]
     Active Substance: GADOBUTROL
  9. COZAAR [Concomitant]
     Active Substance: LOSARTAN POTASSIUM
  10. DIOVAN [Concomitant]
     Active Substance: VALSARTAN
  11. CONRAY (M I) [Concomitant]
  12. GADOTERIDOL [Concomitant]
     Active Substance: GADOTERIDOL
  13. PAXIL [Concomitant]
     Active Substance: PAROXETINE HYDROCHLORIDE
  14. METHYLPREDNISOLONE. [Concomitant]
     Active Substance: METHYLPREDNISOLONE
  15. BACTRIM [Concomitant]
     Active Substance: SULFAMETHOXAZOLE\TRIMETHOPRIM
  16. IBUPROFEN. [Concomitant]
     Active Substance: IBUPROFEN
  17. OMEPRAZOLE. [Concomitant]
     Active Substance: OMEPRAZOLE
  18. TRUVADA [Suspect]
     Active Substance: EMTRICITABINE\TENOFOVIR DISOPROXIL FUMARATE
     Dosage: UNK
     Route: 048
     Dates: start: 2009, end: 2018
  19. ANTACAND [CANDESARTAN CILEXETIL] [Concomitant]
  20. GADODIAMIDE [Concomitant]
     Active Substance: GADODIAMIDE
  21. ASPIRIN (E.C.) [Concomitant]
     Active Substance: ASPIRIN
  22. ATRIPLA [Suspect]
     Active Substance: EFAVIRENZ\EMTRICITABINE\TENOFOVIR DISOPROXIL FUMARATE
     Indication: HIV INFECTION
     Route: 048
  23. ACETAMINOPHEN. [Concomitant]
     Active Substance: ACETAMINOPHEN
  24. DICLOFENAC [Concomitant]
     Active Substance: DICLOFENAC
  25. LIPIODOL [Concomitant]
     Active Substance: ETHIODIZED OIL
  26. CYSTOGRAFIN [Concomitant]
     Active Substance: DIATRIZOATE MEGLUMINE
  27. PROZAC [Concomitant]
     Active Substance: FLUOXETINE HYDROCHLORIDE
  28. TRUVADA [Suspect]
     Active Substance: EMTRICITABINE\TENOFOVIR DISOPROXIL FUMARATE
     Indication: HIV INFECTION
     Dosage: UNK
     Route: 048
     Dates: start: 200112, end: 201603
  29. ACYCLOVIR [ACICLOVIR] [Concomitant]
     Active Substance: ACYCLOVIR
  30. BENICAR [Concomitant]
     Active Substance: OLMESARTAN MEDOXOMIL
  31. PREDNISONE. [Concomitant]
     Active Substance: PREDNISONE

REACTIONS (7)
  - Emotional distress [Unknown]
  - Osteonecrosis [Recovered/Resolved]
  - Osteoporosis [Unknown]
  - Osteonecrosis [Unknown]
  - Bone loss [Unknown]
  - Pain [Unknown]
  - Economic problem [Unknown]

NARRATIVE: CASE EVENT DATE: 2015
